FAERS Safety Report 25499522 (Version 1)
Quarter: 2025Q3

REPORT INFORMATION
  Report Type: Spontaneous
  Country: US (occurrence: None)
  Receive Date: 20250701
  Receipt Date: 20250701
  Transmission Date: 20251021
  Serious: Yes (Disabling, Other)
  Sender: FDA-CTU
  Company Number: None

PATIENT
  Age: 72 Year
  Sex: Female

DRUGS (1)
  1. HUMIRA [Suspect]
     Active Substance: ADALIMUMAB
     Dosage: OTHER QUANTITY : PATIENT REPORTED THAT HER BLOOS PRESSURE HAS BEEN ;?FREQUENCY : EVERY OTHER WEEK;?

REACTIONS (2)
  - Blood pressure increased [None]
  - Transient ischaemic attack [None]
